FAERS Safety Report 15586604 (Version 1)
Quarter: 2018Q4

REPORT INFORMATION
  Report Type: Spontaneous
  Country: US (occurrence: US)
  Receive Date: 20181105
  Receipt Date: 20181105
  Transmission Date: 20190205
  Serious: Yes (Other)
  Sender: FDA-Public Use
  Company Number: US-PFIZER INC-2018449931

PATIENT
  Age: 79 Year

DRUGS (1)
  1. LYRICA [Suspect]
     Active Substance: PREGABALIN
     Dosage: 75 MG, 2X/DAY (2 TIMES A DAY (MORNING AND NIGHT)

REACTIONS (3)
  - Limb discomfort [Unknown]
  - Gait inability [Unknown]
  - Pain [Unknown]
